FAERS Safety Report 10959858 (Version 2)
Quarter: 2015Q2

REPORT INFORMATION
  Report Type: Spontaneous
  Country: US (occurrence: US)
  Receive Date: 20150327
  Receipt Date: 20150415
  Transmission Date: 20150821
  Serious: No
  Sender: FDA-Public Use
  Company Number: US-AMGEN-USASP2015026567

PATIENT
  Age: 45 Year
  Sex: Male

DRUGS (3)
  1. ENBREL [Suspect]
     Active Substance: ETANERCEPT
     Indication: RHEUMATOID ARTHRITIS
     Dosage: 50 MG, QWK
     Route: 065
     Dates: start: 20060101
  2. HUMIRA [Concomitant]
     Active Substance: ADALIMUMAB
     Dosage: UNK
  3. XELJANZ [Concomitant]
     Active Substance: TOFACITINIB CITRATE
     Dosage: UNK

REACTIONS (16)
  - Arthropathy [Recovered/Resolved]
  - Blister [Recovered/Resolved]
  - Paraesthesia [Not Recovered/Not Resolved]
  - Tendon injury [Not Recovered/Not Resolved]
  - Ingrowing nail [Recovered/Resolved]
  - Insomnia [Unknown]
  - Rotator cuff syndrome [Not Recovered/Not Resolved]
  - Pain in extremity [Unknown]
  - Fatigue [Unknown]
  - Musculoskeletal pain [Not Recovered/Not Resolved]
  - Hypoaesthesia [Not Recovered/Not Resolved]
  - Laboratory test abnormal [Not Recovered/Not Resolved]
  - Viral infection [Recovered/Resolved]
  - Arthritis [Recovering/Resolving]
  - Peripheral swelling [Not Recovered/Not Resolved]
  - Nerve injury [Not Recovered/Not Resolved]

NARRATIVE: CASE EVENT DATE: 2010
